FAERS Safety Report 23977280 (Version 1)
Quarter: 2024Q2

REPORT INFORMATION
  Report Type: Spontaneous
  Country: US (occurrence: None)
  Receive Date: 20240614
  Receipt Date: 20240614
  Transmission Date: 20240716
  Serious: Yes (Other)
  Sender: FDA-Public Use
  Company Number: None

PATIENT
  Age: 70 Year
  Sex: Female
  Weight: 47.25 kg

DRUGS (7)
  1. REVLIMID [Suspect]
     Active Substance: LENALIDOMIDE
     Indication: Plasma cell myeloma
     Dosage: 2.5 MG DAILY ORAL
     Route: 048
     Dates: start: 20220408
  2. Potassium Chlroride ER Tab 20 meq [Concomitant]
  3. Nephro-Vite Oral Tab 0.8 mg [Concomitant]
  4. Sodium Bicarb Tab 650 mg [Concomitant]
  5. LISINOPRIL [Concomitant]
     Active Substance: LISINOPRIL
  6. Tums 500mg [Concomitant]
  7. Mag Ox 400mg [Concomitant]

REACTIONS (1)
  - Glomerular filtration rate decreased [None]

NARRATIVE: CASE EVENT DATE: 20240613
